FAERS Safety Report 24006073 (Version 1)
Quarter: 2024Q2

REPORT INFORMATION
  Report Type: Spontaneous
  Country: US (occurrence: None)
  Receive Date: 20240622
  Receipt Date: 20240622
  Transmission Date: 20240715
  Serious: Yes (Hospitalization)
  Sender: FDA-Public Use
  Company Number: None

PATIENT
  Age: 72 Year
  Sex: Male

DRUGS (1)
  1. LOSARTAN POTASSIUM [Suspect]
     Active Substance: LOSARTAN POTASSIUM
     Dates: start: 20221108, end: 20240605

REACTIONS (4)
  - Angioedema [None]
  - Perirectal abscess [None]
  - Swollen tongue [None]
  - Soft tissue swelling [None]

NARRATIVE: CASE EVENT DATE: 20240605
